FAERS Safety Report 7673206-6 (Version None)
Quarter: 2011Q3

REPORT INFORMATION
  Report Type: 
  Country: None (occurrence: None)
  Receive Date: 20110810
  Receipt Date: 20110805
  Transmission Date: 20111222
  Serious: No
  Sender: FDA-Public Use
  Company Number: US-BIOGENIDEC-2011BI029755

PATIENT
  Age: 62 Year
  Sex: Male

DRUGS (5)
  1. TYSABRI [Suspect]
     Route: 042
     Dates: start: 20060927, end: 20070321
  2. TYSABRI [Suspect]
     Indication: MULTIPLE SCLEROSIS
     Route: 042
     Dates: start: 20110708
  3. BENADRYL [Concomitant]
     Indication: PREMEDICATION
  4. TYSABRI [Suspect]
     Route: 042
     Dates: start: 20070525, end: 20091019
  5. PREDNISONE [Concomitant]
     Indication: PREMEDICATION

REACTIONS (1)
  - FATIGUE [None]
